FAERS Safety Report 12169079 (Version 1)
Quarter: 2016Q1

REPORT INFORMATION
  Report Type: Spontaneous
  Country: US (occurrence: US)
  Receive Date: 20160310
  Receipt Date: 20160310
  Transmission Date: 20160526
  Serious: Yes (Hospitalization)
  Sender: FDA-Public Use
  Company Number: US-PFIZER INC-2016143678

PATIENT
  Sex: Female

DRUGS (1)
  1. NEURONTIN [Suspect]
     Active Substance: GABAPENTIN
     Dosage: 600 MG

REACTIONS (9)
  - Musculoskeletal chest pain [Unknown]
  - Drug hypersensitivity [Unknown]
  - Protein total abnormal [Unknown]
  - Fatigue [Unknown]
  - Pyrexia [Unknown]
  - Constipation [Unknown]
  - Nausea [Unknown]
  - Blood disorder [Unknown]
  - Chromaturia [Unknown]
